FAERS Safety Report 9684628 (Version 1)
Quarter: 2013Q4

REPORT INFORMATION
  Report Type: Report from Study
  Country: CA (occurrence: CA)
  Receive Date: 20131112
  Receipt Date: 20131112
  Transmission Date: 20140711
  Serious: Yes (Other)
  Sender: FDA-Public Use
  Company Number: CA-ABBVIE-13P-028-1166304-00

PATIENT
  Sex: Female

DRUGS (2)
  1. HUMIRA [Suspect]
     Indication: PRODUCT USED FOR UNKNOWN INDICATION
     Route: 058
     Dates: end: 2013
  2. HUMIRA [Suspect]
     Route: 058

REACTIONS (9)
  - Foot deformity [Recovered/Resolved]
  - Injection site pain [Not Recovered/Not Resolved]
  - Injection site swelling [Not Recovered/Not Resolved]
  - Injection site bruising [Not Recovered/Not Resolved]
  - Pain in extremity [Unknown]
  - Gait disturbance [Recovered/Resolved]
  - Arthritis [Recovered/Resolved]
  - Face oedema [Not Recovered/Not Resolved]
  - Systemic lupus erythematosus [Unknown]
